FAERS Safety Report 24039249 (Version 3)
Quarter: 2025Q1

REPORT INFORMATION
  Report Type: Report from Study
  Country: GB (occurrence: GB)
  Receive Date: 20240702
  Receipt Date: 20250305
  Transmission Date: 20250408
  Serious: Yes (Hospitalization, Other)
  Sender: TAKEDA
  Company Number: GB-TAKEDA-2024TUS030652

PATIENT
  Sex: Male

DRUGS (5)
  1. TEDUGLUTIDE [Suspect]
     Active Substance: TEDUGLUTIDE
     Indication: Short-bowel syndrome
  2. TEDUGLUTIDE [Suspect]
     Active Substance: TEDUGLUTIDE
  3. TEDUGLUTIDE [Suspect]
     Active Substance: TEDUGLUTIDE
  4. TEDUGLUTIDE [Suspect]
     Active Substance: TEDUGLUTIDE
  5. MIRTAZAPINE [Suspect]
     Active Substance: MIRTAZAPINE
     Indication: Anxiety

REACTIONS (9)
  - Inflammatory bowel disease [Unknown]
  - Administration site pain [Unknown]
  - Feeding disorder [Unknown]
  - Somnolence [Unknown]
  - Drug effect less than expected [Unknown]
  - Anxiety [Unknown]
  - Product use complaint [Unknown]
  - Drug ineffective [Unknown]
  - Abdominal distension [Unknown]
